FAERS Safety Report 8199403-1 (Version None)
Quarter: 2012Q1

REPORT INFORMATION
  Report Type: 
  Country: None (occurrence: None)
  Receive Date: 20120309
  Receipt Date: 20120305
  Transmission Date: 20120608
  Serious: Yes (Other)
  Sender: FDA-Public Use
  Company Number: US-ABBOTT-12P-163-0901405-00

PATIENT
  Sex: Female
  Weight: 63.56 kg

DRUGS (2)
  1. HUMIRA [Suspect]
     Indication: CROHN'S DISEASE
     Dates: start: 20100801, end: 20110101
  2. HUMIRA [Suspect]
     Dates: start: 20110601

REACTIONS (9)
  - DIARRHOEA [None]
  - NAUSEA [None]
  - FATIGUE [None]
  - CROHN'S DISEASE [None]
  - VOMITING [None]
  - INTESTINAL STENOSIS [None]
  - GASTROINTESTINAL PAIN [None]
  - INTESTINAL ULCER [None]
  - GASTROINTESTINAL INFLAMMATION [None]
